FAERS Safety Report 4819587-X (Version None)
Quarter: 2005Q4

REPORT INFORMATION
  Report Type: 
  Country: None (occurrence: None)
  Receive Date: 20051102
  Receipt Date: 20051018
  Transmission Date: 20060501
  Serious: Yes (Hospitalization)
  Sender: FDA-Public Use
  Company Number: 2005S1008635

PATIENT
  Age: 79 Year
  Sex: Female

DRUGS (18)
  1. EXTENDED PHENYTOIN SODIUM [Suspect]
     Dosage: 200 + 300 + 100 MG;TID/QOD;PO - SEE IMAGE
     Route: 048
     Dates: start: 19980101, end: 20050731
  2. EXTENDED PHENYTOIN SODIUM [Suspect]
     Dosage: 200 + 300 + 100 MG;TID/QOD;PO - SEE IMAGE
     Route: 048
     Dates: start: 20050808, end: 20050816
  3. EXTENDED PHENYTOIN SODIUM [Suspect]
     Dosage: 200 + 300 + 100 MG;TID/QOD;PO - SEE IMAGE
     Route: 048
     Dates: start: 20050816, end: 20050825
  4. EXTENDED PHENYTOIN SODIUM [Suspect]
     Dosage: 200 + 300 + 100 MG;TID/QOD;PO - SEE IMAGE
     Route: 048
     Dates: start: 20050816, end: 20050825
  5. EXTENDED PHENYTOIN SODIUM [Suspect]
     Dosage: 200 + 300 + 100 MG;TID/QOD;PO - SEE IMAGE
     Route: 048
     Dates: start: 20050904, end: 20050925
  6. EXTENDED PHENYTOIN SODIUM [Suspect]
     Dosage: 200 + 300 + 100 MG;TID/QOD;PO - SEE IMAGE
     Route: 048
     Dates: start: 20050927, end: 20050929
  7. EXTENDED PHENYTOIN SODIUM [Suspect]
     Dosage: 200 + 300 + 100 MG;TID/QOD;PO - SEE IMAGE
     Route: 048
     Dates: start: 20050930, end: 20051001
  8. EXTENDED PHENYTOIN SODIUM [Suspect]
     Dosage: 200 + 300 + 100 MG;TID/QOD;PO - SEE IMAGE
     Route: 048
     Dates: start: 20051002, end: 20051005
  9. EXTENDED PHENYTOIN SODIUM [Suspect]
     Dosage: 200 + 300 + 100 MG;TID/QOD;PO - SEE IMAGE
     Route: 048
     Dates: start: 20051002, end: 20051005
  10. LIDOCAINE [Concomitant]
  11. VITAMINS NOS [Concomitant]
  12. CALCIUM GLUCONATE [Concomitant]
  13. VITAMIN B COMPLEX CAP [Concomitant]
  14. COD-LIVER OIL [Concomitant]
  15. ZINC [Concomitant]
  16. ASCORBIC ACID [Concomitant]
  17. ASPIRIN [Concomitant]
  18. IBUPROFEN [Concomitant]

REACTIONS (3)
  - ANTICONVULSANT DRUG LEVEL BELOW THERAPEUTIC [None]
  - GRAND MAL CONVULSION [None]
  - TREATMENT NONCOMPLIANCE [None]
